FAERS Safety Report 4864123-5 (Version None)
Quarter: 2005Q4

REPORT INFORMATION
  Report Type: 
  Country: None (occurrence: None)
  Receive Date: 20051222
  Receipt Date: 20051112
  Transmission Date: 20060501
  Serious: Yes (Death, Life-Threatening)
  Sender: FDA-Public Use
  Company Number: JP-JPN-A20052736

PATIENT
  Age: 91 Year
  Sex: Female
  Weight: 52 kg

DRUGS (24)
  1. MODACIN [Suspect]
     Indication: BRONCHITIS ACUTE
     Dosage: 1G TWICE PER DAY
     Route: 042
     Dates: start: 20051108, end: 20051110
  2. HANP [Suspect]
     Indication: CARDIAC FAILURE
     Route: 042
     Dates: start: 20051108, end: 20051110
  3. BOSMIN [Concomitant]
     Route: 065
  4. CATABON [Concomitant]
     Indication: CARDIAC FAILURE ACUTE
     Route: 042
     Dates: start: 20051108
  5. OMEPRAL [Concomitant]
     Dosage: 40MG PER DAY
     Route: 042
     Dates: start: 20051108
  6. LASIX [Concomitant]
     Indication: CARDIAC FAILURE ACUTE
     Dosage: 40MG PER DAY
     Route: 042
     Dates: start: 20051109, end: 20051110
  7. PREDONINE [Concomitant]
     Indication: ASTHMA
     Dosage: 10MG PER DAY
     Route: 048
     Dates: start: 20051107, end: 20051108
  8. RENIVACE [Concomitant]
     Indication: CARDIAC FAILURE CHRONIC
     Dosage: 2.5MG PER DAY
     Route: 048
     Dates: start: 20050927
  9. LASIX [Concomitant]
     Indication: CARDIAC FAILURE CHRONIC
     Dosage: 20MG PER DAY
     Route: 048
     Dates: start: 20050927
  10. ALDACTONE [Concomitant]
     Indication: CARDIAC FAILURE CHRONIC
     Dosage: 25MG PER DAY
     Route: 048
     Dates: start: 20050927, end: 20051111
  11. DEKASOFT [Concomitant]
     Indication: CARDIAC FAILURE CHRONIC
     Dosage: 30MG PER DAY
     Route: 048
     Dates: start: 20050927
  12. ROCORNAL [Concomitant]
     Indication: ANGINA PECTORIS
     Dosage: 300MG PER DAY
     Route: 048
     Dates: start: 20050927
  13. ZYLORIC [Concomitant]
     Indication: HYPERURICAEMIA
     Route: 048
     Dates: start: 20050927
  14. DIGOXIN [Concomitant]
     Indication: CARDIAC FAILURE CHRONIC
     Dosage: .5TAB PER DAY
     Route: 048
     Dates: start: 20051027
  15. MILLIS [Concomitant]
     Indication: ANGINA PECTORIS
     Dosage: 10MG PER DAY
     Route: 062
     Dates: start: 20050927
  16. MILLISROL (JAPAN) [Concomitant]
     Indication: CARDIAC FAILURE ACUTE
     Route: 042
     Dates: start: 20051026, end: 20051029
  17. FERROMIA [Concomitant]
     Indication: IRON DEFICIENCY ANAEMIA
     Dosage: 100MG PER DAY
     Route: 048
     Dates: start: 20051029, end: 20051111
  18. KALGUT [Concomitant]
     Indication: CARDIAC FAILURE ACUTE
     Dosage: 15MG PER DAY
     Route: 048
     Dates: start: 20051026, end: 20051029
  19. PL [Concomitant]
     Indication: NASOPHARYNGITIS
     Dosage: 3G PER DAY
     Route: 048
     Dates: start: 20051102, end: 20051107
  20. FLOMOX [Concomitant]
     Indication: BRONCHITIS ACUTE
     Dosage: 300MG PER DAY
     Route: 048
     Dates: start: 20051102, end: 20051107
  21. FOLIAMIN [Concomitant]
     Indication: ANAEMIA FOLATE DEFICIENCY
     Dosage: 15MG PER DAY
     Route: 048
     Dates: start: 20051104, end: 20051111
  22. THEO-DUR [Concomitant]
     Indication: ASTHMA
     Dosage: 200MG PER DAY
     Route: 048
     Dates: start: 20051104, end: 20051106
  23. THEO-DUR [Concomitant]
     Dosage: 15ML PER DAY
     Route: 048
     Dates: start: 20051108, end: 20051111
  24. ONON [Concomitant]
     Indication: ASTHMA
     Dosage: 225MG PER DAY
     Route: 048
     Dates: start: 20051108

REACTIONS (9)
  - ALANINE AMINOTRANSFERASE INCREASED [None]
  - ASPARTATE AMINOTRANSFERASE INCREASED [None]
  - CARDIAC ARREST [None]
  - CARDIAC FAILURE CHRONIC [None]
  - LIVER DISORDER [None]
  - NAUSEA [None]
  - OLIGURIA [None]
  - RENAL FAILURE ACUTE [None]
  - RESPIRATORY ARREST [None]
